FAERS Safety Report 4762623-X (Version None)
Quarter: 2005Q3

REPORT INFORMATION
  Report Type: 
  Country: None (occurrence: None)
  Receive Date: 20050907
  Receipt Date: 20050825
  Transmission Date: 20060218
  Serious: Yes (Hospitalization)
  Sender: FDA-Public Use
  Company Number: FR-GLAXOSMITHKLINE-B0391954A

PATIENT
  Age: 56 Year
  Sex: Male

DRUGS (3)
  1. ONDANSETRON [Suspect]
     Indication: DRUG USE FOR UNKNOWN INDICATION
     Route: 048
     Dates: start: 20050613, end: 20050725
  2. FOTEMUSTINE [Suspect]
     Indication: GLIOBLASTOMA
     Route: 042
     Dates: start: 20050613, end: 20050725
  3. OROKEN [Suspect]
     Indication: URINARY TRACT INFECTION
     Dosage: 200MG TWICE PER DAY
     Route: 048
     Dates: start: 20050706, end: 20050726

REACTIONS (7)
  - ALANINE AMINOTRANSFERASE INCREASED [None]
  - ASPARTATE AMINOTRANSFERASE INCREASED [None]
  - BLOOD BILIRUBIN INCREASED [None]
  - CHOLESTASIS [None]
  - HEPATOCELLULAR DAMAGE [None]
  - JAUNDICE [None]
  - NAUSEA [None]
